FAERS Safety Report 8815298 (Version 1)
Quarter: 2012Q4

REPORT INFORMATION
  Report Type: 
  Country: VE (occurrence: VE)
  Receive Date: 20120928
  Receipt Date: 20120928
  Transmission Date: 20130627
  Serious: Yes (Other)
  Sender: FDA-Public Use
  Company Number: VE-JNJFOC-20120912384

PATIENT
  Age: 54 Year
  Sex: Female

DRUGS (2)
  1. LEVAQUIN [Suspect]
     Indication: SINUSITIS
     Route: 065
  2. MANIDON [Concomitant]
     Indication: HYPERTENSION
     Route: 065

REACTIONS (1)
  - Insomnia [Recovered/Resolved]
